FAERS Safety Report 8459218-3 (Version None)
Quarter: 2012Q2

REPORT INFORMATION
  Report Type: 
  Country: None (occurrence: None)
  Receive Date: 20120622
  Receipt Date: 20120621
  Transmission Date: 20120825
  Serious: Yes (Hospitalization)
  Sender: FDA-Public Use
  Company Number: GB-GLAXOSMITHKLINE-B0809595A

PATIENT
  Age: 41 Year
  Sex: Female

DRUGS (2)
  1. NICOTINE [Suspect]
     Dosage: 384MG CUMULATIVE DOSE
     Route: 062
     Dates: start: 20120423, end: 20120514
  2. NICORETTE [Suspect]
     Route: 055
     Dates: start: 20120423

REACTIONS (2)
  - PALPITATIONS [None]
  - PANIC ATTACK [None]
